FAERS Safety Report 6372181-4 (Version None)
Quarter: 2009Q3

REPORT INFORMATION
  Report Type: 
  Country: None (occurrence: None)
  Receive Date: 20090923
  Receipt Date: 20090916
  Transmission Date: 20100115
  Serious: Yes (Other)
  Sender: FDA-Public Use
  Company Number: DE-JNJCH-2009024828

PATIENT
  Age: 62 Year
  Sex: Female

DRUGS (1)
  1. REGAINE 2% [Suspect]
     Indication: DRUG USE FOR UNKNOWN INDICATION
     Dosage: TEXT:UNSPECIFIED
     Route: 061

REACTIONS (3)
  - EYE DISORDER [None]
  - HYPERHIDROSIS [None]
  - PALPITATIONS [None]
